FAERS Safety Report 8382331 (Version 2)
Quarter: 2012Q4

REPORT INFORMATION
  Report Type: Spontaneous
  Country: IT (occurrence: None)
  Receive Date: 20120118
  Receipt Date: 20120830
  Transmission Date: 20130627
  Serious: Yes (Other)
  Sender: FDA-Public Use
  Company Number: B0773881A

PATIENT
  Age: 97 Year
  Sex: Female

DRUGS (6)
  1. DIGOXIN [Suspect]
     Indication: PRODUCT USED FOR UNKNOWN INDICATION
     Dates: start: 20111101, end: 20111109
  2. FUROSEMIDE [Suspect]
     Indication: PRODUCT USED FOR UNKNOWN INDICATION
     Dates: start: 20111101, end: 20111109
  3. UNSPECIFIED INGREDIENT [Suspect]
     Indication: PRODUCT USED FOR UNKNOWN INDICATION
     Dates: start: 20111101, end: 20111109
  4. LANOXIN [Suspect]
     Dates: start: 20111101, end: 20111109
  5. LASIX [Suspect]
     Dates: start: 20111101, end: 20111109
  6. NITROGLYCERIN [Suspect]
     Dates: start: 20111101, end: 20111109

REACTIONS (2)
  - Syncope [None]
  - Hypotension [None]
